FAERS Safety Report 5671847-9 (Version None)
Quarter: 2008Q1

REPORT INFORMATION
  Report Type: 
  Country: None (occurrence: None)
  Receive Date: 20080319
  Receipt Date: 20080310
  Transmission Date: 20080703
  Serious: Yes (Disabling)
  Sender: FDA-Public Use
  Company Number: JP-SP-2008-00748

PATIENT
  Age: 59 Year
  Sex: Male

DRUGS (9)
  1. IMMUCYST [Suspect]
     Indication: BLADDER CANCER
     Route: 043
     Dates: start: 20051111, end: 20051216
  2. IMMUCYST [Suspect]
     Route: 043
     Dates: start: 20051111, end: 20051216
  3. IMMUCYST [Suspect]
     Route: 043
     Dates: start: 20051111, end: 20051216
  4. NAFTOPIDIL [Concomitant]
     Dates: start: 20051111, end: 20060127
  5. GLIBENCLAMIDE [Concomitant]
     Dates: start: 20020201
  6. VOGLIBOSE [Concomitant]
     Dates: start: 20020201
  7. BENAZEPRIL HYDROCHLORIDE [Concomitant]
     Dates: start: 20020201
  8. AMLODIPINE BESYLATE [Concomitant]
     Dates: start: 20020201
  9. INSULIN HUMAN(GENETICAL RECOMBINATION) [Concomitant]
     Dates: start: 20020201

REACTIONS (3)
  - DYSURIA [None]
  - PYREXIA [None]
  - RENAL IMPAIRMENT [None]
